FAERS Safety Report 19283438 (Version 2)
Quarter: 2021Q2

REPORT INFORMATION
  Report Type: Spontaneous
  Country: US (occurrence: US)
  Receive Date: 20210520
  Receipt Date: 20210524
  Transmission Date: 20210717
  Serious: No
  Sender: FDA-Public Use
  Company Number: NVSC2021US106821

PATIENT
  Sex: Female

DRUGS (1)
  1. BIMATOPROST. [Suspect]
     Active Substance: BIMATOPROST
     Indication: PRODUCT USED FOR UNKNOWN INDICATION
     Dosage: UNK UNK, QD (0.03 %)
     Route: 065

REACTIONS (4)
  - Eye discharge [Unknown]
  - Ocular hyperaemia [Unknown]
  - Eye irritation [Unknown]
  - Blepharal pigmentation [Unknown]
